FAERS Safety Report 14191986 (Version 2)
Quarter: 2018Q3

REPORT INFORMATION
  Report Type: Spontaneous
  Country: FR (occurrence: FR)
  Receive Date: 20171115
  Receipt Date: 20180814
  Transmission Date: 20181010
  Serious: Yes (Hospitalization, Other)
  Sender: FDA-Public Use
  Company Number: FR-B.I. PHARMACEUTICALS,INC./RIDGEFIELD-2017-BI-060789

PATIENT
  Age: 55 Year
  Sex: Female
  Weight: 160 kg

DRUGS (1)
  1. PRADAXA [Suspect]
     Active Substance: DABIGATRAN ETEXILATE MESYLATE
     Indication: ATRIAL FIBRILLATION
     Route: 048

REACTIONS (6)
  - Musculoskeletal pain [Unknown]
  - Overdose [Unknown]
  - Erysipelas [Unknown]
  - Acute kidney injury [Unknown]
  - Septic shock [Unknown]
  - Anticoagulation drug level above therapeutic [Unknown]
